FAERS Safety Report 23584202 (Version 2)
Quarter: 2024Q3

REPORT INFORMATION
  Report Type: Spontaneous
  Country: US (occurrence: US)
  Receive Date: 20240301
  Receipt Date: 20240815
  Transmission Date: 20241016
  Serious: No
  Sender: BRISTOL MYERS SQUIBB
  Company Number: US-BRISTOL-MYERS SQUIBB COMPANY-2024-033154

PATIENT
  Age: 74 Year
  Sex: Female

DRUGS (2)
  1. REVLIMID [Suspect]
     Active Substance: LENALIDOMIDE
     Indication: Plasma cell myeloma
     Route: 048
  2. REVLIMID [Suspect]
     Active Substance: LENALIDOMIDE
     Dosage: DOSE: 10; FREQUENCY: QD FOR 7 DAYS
     Route: 048

REACTIONS (6)
  - Platelet count decreased [Unknown]
  - Depression [Unknown]
  - Musculoskeletal discomfort [Unknown]
  - Headache [Unknown]
  - Nausea [Unknown]
  - Off label use [Unknown]
